FAERS Safety Report 7901805-2 (Version None)
Quarter: 2011Q4

REPORT INFORMATION
  Report Type: 
  Country: None (occurrence: None)
  Receive Date: 20111108
  Receipt Date: 20111028
  Transmission Date: 20120403
  Serious: Yes (Hospitalization)
  Sender: FDA-Public Use
  Company Number: PHHY2011US55124

PATIENT
  Sex: Male

DRUGS (2)
  1. EXJADE [Suspect]
     Dosage: 1000 MG, QD
     Route: 048
  2. EXJADE [Suspect]
     Dosage: 1250 MG, QD
     Route: 048

REACTIONS (1)
  - CEREBROVASCULAR ACCIDENT [None]
